FAERS Safety Report 4809177-7 (Version None)
Quarter: 2005Q4

REPORT INFORMATION
  Report Type: 
  Country: None (occurrence: None)
  Receive Date: 20051021
  Receipt Date: 20051021
  Transmission Date: 20060501
  Serious: Yes (Death)
  Sender: FDA-Public Use
  Company Number: None

PATIENT
  Age: 28 Year
  Sex: Female
  Weight: 53 kg

DRUGS (1)
  1. ACETADOTE [Suspect]
     Indication: DRUG TOXICITY
     Dosage: SEE IMAGE
     Dates: start: 20041203, end: 20041207

REACTIONS (7)
  - ABDOMINAL PAIN [None]
  - DRUG TOXICITY [None]
  - HEPATIC TRAUMA [None]
  - HYPOTENSION [None]
  - RENAL FAILURE [None]
  - RHABDOMYOLYSIS [None]
  - VOMITING [None]
